FAERS Safety Report 8941728 (Version 6)
Quarter: 2013Q4

REPORT INFORMATION
  Report Type: Report from Study
  Country: HU (occurrence: HU)
  Receive Date: 20121203
  Receipt Date: 20131202
  Transmission Date: 20140711
  Serious: Yes (Hospitalization, Other)
  Sender: FDA-Public Use
  Company Number: PHHO2012HU017161

PATIENT
  Sex: 0

DRUGS (4)
  1. ACZ885 [Suspect]
     Indication: JUVENILE IDIOPATHIC ARTHRITIS
     Route: 058
     Dates: start: 20121127
  2. MEDROL [Concomitant]
     Indication: JUVENILE IDIOPATHIC ARTHRITIS
     Dosage: 14 MG, UNK
     Route: 048
     Dates: start: 20120916
  3. LOSEC [Concomitant]
     Indication: PROPHYLAXIS
     Dosage: 10 MG, BID
     Route: 048
     Dates: start: 20120916
  4. KALIDURON [Concomitant]
     Indication: PROPHYLAXIS
     Dosage: 1 DF, BID
     Route: 048
     Dates: start: 20120916

REACTIONS (4)
  - Pericardial effusion [Recovered/Resolved]
  - Pleurisy [Recovered/Resolved]
  - Bronchopneumonia [Recovered/Resolved]
  - Serositis [Recovered/Resolved]
